FAERS Safety Report 7582830-0 (Version None)
Quarter: 2011Q2

REPORT INFORMATION
  Report Type: 
  Country: None (occurrence: None)
  Receive Date: 20110630
  Receipt Date: 20110621
  Transmission Date: 20111010
  Serious: Yes (Other)
  Sender: FDA-Public Use
  Company Number: DE-NOVOPROD-330065

PATIENT
  Sex: Male
  Weight: 108 kg

DRUGS (11)
  1. TAMSULOSIN HCL [Concomitant]
     Dosage: 0.4 MG, QD
  2. OMEPRAZOLE [Concomitant]
  3. RAMIPRIL [Concomitant]
     Dosage: 5 MG, QD
  4. AMARYL [Suspect]
     Dosage: 3 MG, QD
  5. SIMVASTATIN [Concomitant]
     Dosage: 20 MG, QD
  6. BISOPROLOL [Concomitant]
     Dosage: 5 MG, QD
  7. METFORMIN HCL [Concomitant]
     Dosage: 3000 UNK, QD
  8. LEVEMIR [Concomitant]
     Dosage: 42 IE, QD
  9. VICTOZA [Suspect]
     Indication: OBESITY
  10. VICTOZA [Suspect]
     Indication: TYPE 2 DIABETES MELLITUS
     Dosage: 1.2 MG, QD
     Route: 058
     Dates: start: 20091001, end: 20100501
  11. ASPIRIN [Concomitant]
     Dosage: 300 MG, QD

REACTIONS (1)
  - PANCREATIC CARCINOMA [None]
